FAERS Safety Report 8014041-9 (Version None)
Quarter: 2011Q4

REPORT INFORMATION
  Report Type: 
  Country: None (occurrence: None)
  Receive Date: 20111229
  Receipt Date: 20111221
  Transmission Date: 20120403
  Serious: Yes (Hospitalization)
  Sender: FDA-Public Use
  Company Number: US-BAYER-2011-040537

PATIENT
  Age: 30 Year
  Sex: Female
  Weight: 86 kg

DRUGS (5)
  1. AMOXICILLIN [Concomitant]
     Dosage: UNK
     Dates: start: 20050501
  2. YASMIN [Suspect]
     Dosage: UNK
     Dates: start: 20050324, end: 20050622
  3. IBUPROFEN [Concomitant]
  4. PROMETRIUM [Concomitant]
     Dosage: UNK
     Dates: start: 20050511
  5. PENICILLIN VK [Concomitant]

REACTIONS (11)
  - DYSPNOEA [None]
  - INJURY [None]
  - SWELLING [None]
  - ANXIETY [None]
  - PAIN [None]
  - PULMONARY EMBOLISM [None]
  - PAIN IN EXTREMITY [None]
  - FEAR [None]
  - EMOTIONAL DISTRESS [None]
  - GENERAL PHYSICAL HEALTH DETERIORATION [None]
  - CHEST PAIN [None]
